FAERS Safety Report 8051410-5 (Version None)
Quarter: 2012Q1

REPORT INFORMATION
  Report Type: 
  Country: None (occurrence: None)
  Receive Date: 20120117
  Receipt Date: 20120109
  Transmission Date: 20120608
  Serious: Yes (Other)
  Sender: FDA-Public Use
  Company Number: US-ASTRAZENECA-2012SE01523

PATIENT
  Age: 47 Year
  Sex: Male
  Weight: 88 kg

DRUGS (4)
  1. ATENOLOL [Concomitant]
  2. ASPIRIN [Concomitant]
  3. CRESTOR [Suspect]
     Route: 048
  4. CRESTOR [Suspect]
     Indication: BLOOD CHOLESTEROL INCREASED
     Route: 048

REACTIONS (11)
  - ERECTILE DYSFUNCTION [None]
  - EMOTIONAL DISORDER [None]
  - GENERAL PHYSICAL HEALTH DETERIORATION [None]
  - BACK PAIN [None]
  - NERVE INJURY [None]
  - HYPOTONIA [None]
  - PENIS DISORDER [None]
  - PENILE NEOPLASM [None]
  - SCAR [None]
  - BLOOD CHOLESTEROL INCREASED [None]
  - DRUG INEFFECTIVE [None]
